FAERS Safety Report 8582540-7 (Version None)
Quarter: 2012Q3

REPORT INFORMATION
  Report Type: 
  Country: None (occurrence: None)
  Receive Date: 20120809
  Receipt Date: 20120730
  Transmission Date: 20120928
  Serious: Yes (Hospitalization)
  Sender: FDA-Public Use
  Company Number: US-ELI_LILLY_AND_COMPANY-US201202005977

PATIENT
  Sex: Female

DRUGS (38)
  1. LANTUS [Concomitant]
     Dosage: 26 U, QD
  2. COUMADIN [Concomitant]
  3. LOVENOX [Concomitant]
     Dosage: 100 MG, QD
  4. IBUPROFEN [Concomitant]
     Dosage: 600 MG, TID
  5. MIRALAX [Concomitant]
     Dosage: 17 MG, QD
  6. CLOBETASOL PROPIONATE [Concomitant]
     Indication: ECZEMA
  7. CALCIUM WITH VITAMIN D [Concomitant]
     Dosage: 600 MG, TID
  8. BACLOFEN [Concomitant]
     Dosage: 10 MG, TID
  9. PROAIR HFA [Concomitant]
     Dosage: UNK, BID
  10. LEVOTHYROXINE SODIUM [Concomitant]
     Dosage: 25 UG, QD
  11. AMITRIPTYLINE HCL [Concomitant]
     Dosage: 25 MG, OTHER
  12. DEXAMETHASONE [Concomitant]
  13. POTASSIUM [Concomitant]
     Dosage: 40 MEQ, TID
  14. OMEPRAZOLE [Concomitant]
     Dosage: UNK, QD
  15. PLAQUINOL TAB [Concomitant]
     Dosage: 200 MG, BID
  16. ZOFRAN [Concomitant]
     Indication: NAUSEA
     Dosage: 8 MG, EVERY 6 HRS
  17. SENNA-MINT WAF [Concomitant]
     Dosage: UNK, BID
  18. SOMA [Concomitant]
     Dosage: 350 MG, TID
  19. FLUTICASONE PROPIONATE [Concomitant]
     Dosage: UNK, BID
  20. VERAPAMIL [Concomitant]
     Dosage: 120 MG, QD
  21. FIORICET [Concomitant]
     Indication: MIGRAINE
     Dosage: UNK, QID
  22. ARMODAFINIL [Concomitant]
     Indication: CANDIDIASIS
     Dosage: 150 MG, QD
  23. MS CONTIN [Concomitant]
     Dosage: 60 MG, TID
  24. VALIUM [Concomitant]
     Dosage: 5 MG, TID
  25. HUMALOG [Concomitant]
  26. LASIX [Concomitant]
     Dosage: 40 MG, TID
  27. METOLAZONE [Concomitant]
     Dosage: 5 MG, UNK
  28. PHENERGAN HCL [Concomitant]
     Indication: NAUSEA
     Dosage: UNK, PRN
  29. MORPHINE SULFATE [Concomitant]
     Indication: PAIN
  30. GABAPENTIN [Concomitant]
     Dosage: 400 MG, QID
  31. REGLAN [Concomitant]
     Dosage: 10 MG, QID
  32. FORTEO [Suspect]
     Indication: OSTEOPOROSIS
     Dosage: 20 UG, QD
     Dates: start: 20111101
  33. FORTEO [Suspect]
     Dosage: 20 UG, QD
  34. ASPIRIN [Concomitant]
     Dosage: 81 MG, QD
  35. ALDACTONE [Concomitant]
     Dosage: 50 MG, BID
  36. ZANTAC [Concomitant]
     Dosage: 150 MG, TID
  37. BENEFIBER [Concomitant]
     Dosage: 17 MG, QD
  38. BACTROBAN [Concomitant]
     Indication: NASAL DRYNESS

REACTIONS (8)
  - BONE PAIN [None]
  - HOSPITALISATION [None]
  - APHONIA [None]
  - MUSCLE SPASMS [None]
  - OPEN WOUND [None]
  - SYSTEMIC LUPUS ERYTHEMATOSUS [None]
  - OXYGEN SATURATION DECREASED [None]
  - BACK DISORDER [None]
